FAERS Safety Report 21721025 (Version 1)
Quarter: 2022Q4

REPORT INFORMATION
  Report Type: Report from Study
  Country: US (occurrence: US)
  Receive Date: 20221213
  Receipt Date: 20221213
  Transmission Date: 20230113
  Serious: Yes (Hospitalization)
  Sender: FDA-Public Use
  Company Number: US-ABBVIE-4232851

PATIENT
  Sex: Male

DRUGS (1)
  1. HUMIRA [Suspect]
     Active Substance: ADALIMUMAB
     Indication: Crohn^s disease
     Dosage: FORM STRENGTH: 40 MG?CF
     Route: 058

REACTIONS (7)
  - Hospitalisation [Recovering/Resolving]
  - Influenza [Recovering/Resolving]
  - Ear infection [Recovering/Resolving]
  - Fatigue [Not Recovered/Not Resolved]
  - Tonsillitis [Unknown]
  - Lethargy [Unknown]
  - Swelling [Unknown]

NARRATIVE: CASE EVENT DATE: 20220101
